FAERS Safety Report 5794473-X (Version None)
Quarter: 2008Q2

REPORT INFORMATION
  Report Type: 
  Country: None (occurrence: None)
  Receive Date: 20080630
  Receipt Date: 20080616
  Transmission Date: 20081010
  Serious: Yes (Hospitalization, Other)
  Sender: FDA-Public Use
  Company Number: CH-ELI_LILLY_AND_COMPANY-CH200805003175

PATIENT
  Age: 58 Year
  Sex: Male
  Weight: 74 kg

DRUGS (8)
  1. CYMBALTA [Suspect]
     Indication: DEPRESSION
     Dosage: 60 MG, DAILY (1/D)
     Route: 048
     Dates: start: 20071121, end: 20071211
  2. CYMBALTA [Suspect]
     Dosage: 90 MG, DAILY (1/D)
     Route: 065
     Dates: start: 20071212
  3. CREON [Concomitant]
     Indication: PANCREATITIS CHRONIC
     Dosage: 3 U, DAILY (1/D)
     Route: 065
     Dates: start: 20071211
  4. CAPTOPRIL [Concomitant]
     Indication: HYPERTENSION
     Dosage: 37.5 MEQ, DAILY (1/D)
     Route: 048
     Dates: start: 20071121, end: 20080124
  5. GLUCOVANCE [Concomitant]
     Indication: DIABETES MELLITUS
     Dosage: 750 MG, DAILY (1/D)
     Route: 048
     Dates: start: 20071204, end: 20071219
  6. REMERON [Concomitant]
     Indication: DEPRESSION
     Dosage: 30 MG, DAILY (1/D)
     Route: 048
     Dates: start: 20071108, end: 20071218
  7. REMERON [Concomitant]
     Dosage: 15 MG, DAILY (1/D)
     Route: 048
     Dates: start: 20071219, end: 20071227
  8. WELLBUTRIN [Concomitant]
     Dosage: 150 MG, DAILY (1/D)
     Route: 065
     Dates: start: 20071220, end: 20080103

REACTIONS (2)
  - DIABETES MELLITUS [None]
  - WEIGHT DECREASED [None]
